FAERS Safety Report 6595295-2 (Version None)
Quarter: 2010Q1

REPORT INFORMATION
  Report Type: 
  Country: None (occurrence: None)
  Receive Date: 20100212
  Receipt Date: 20100202
  Transmission Date: 20100710
  Serious: Yes (Hospitalization)
  Sender: FDA-Public Use
  Company Number: 2009-04733

PATIENT
  Age: 63 Year
  Sex: Female
  Weight: 53.5 kg

DRUGS (15)
  1. VELCADE [Suspect]
     Indication: MULTIPLE MYELOMA
     Dosage: 1.3 MG/M2, INTRAVENOUS
     Route: 042
     Dates: start: 20090731, end: 20090831
  2. REVLIMID [Suspect]
     Indication: MULTIPLE MYELOMA
     Dosage: 25 MG, QD, ORAL
     Route: 048
     Dates: start: 20090731
  3. DEXAMETHASONE TAB [Suspect]
     Indication: MULTIPLE MYELOMA
     Dosage: 20 MG, ORAL
     Route: 048
     Dates: start: 20090731, end: 20090901
  4. ZOMETA [Concomitant]
  5. ACYCLOVIR [Concomitant]
  6. SINGULAIR (MONTELKUST SODIUM) [Concomitant]
  7. PRILOSEC [Concomitant]
  8. ASPIRIN (ACETYLSALICYLCIC ACID) [Concomitant]
  9. MULTIVITAMINS (ERGOCALCIFEROL, PANTHENOL, NICOTINAMIDE, RIBOFLAVIN, TH [Concomitant]
  10. CALCIUM WITH VITAMIN D (ERGOCALCIFEROL, CALCIUM SODIUM LACTATE, CALCIU [Concomitant]
  11. COMPAZINE /00013302/ (PROCHLORPERAZINE EDISYLATE) [Concomitant]
  12. SENNA /00142201/ (SENNA ALEXANDRINA) [Concomitant]
  13. AMBIEN (ZOLPIEM TARTRATE) [Concomitant]
  14. TYLENOL /00020001/ (PARACETAMOL) [Concomitant]
  15. FLUCONAZOLE [Concomitant]

REACTIONS (2)
  - MEDICAL DEVICE COMPLICATION [None]
  - THROMBOSIS [None]
